FAERS Safety Report 12535934 (Version 1)
Quarter: 2016Q3

REPORT INFORMATION
  Report Type: Spontaneous
  Country: US (occurrence: US)
  Receive Date: 20160707
  Receipt Date: 20160707
  Transmission Date: 20161109
  Serious: No
  Sender: FDA-Public Use
  Company Number: US-SUN PHARMACEUTICAL INDUSTRIES LTD-2015US-101416

PATIENT
  Sex: Male

DRUGS (1)
  1. ABSORICA [Suspect]
     Active Substance: ISOTRETINOIN
     Indication: PRODUCT USED FOR UNKNOWN INDICATION
     Dosage: UNK
     Route: 065
     Dates: start: 2015

REACTIONS (6)
  - Epistaxis [Unknown]
  - Headache [Unknown]
  - Arthralgia [Unknown]
  - Fatigue [Unknown]
  - Myalgia [Unknown]
  - Mood swings [Unknown]

NARRATIVE: CASE EVENT DATE: 2015
